FAERS Safety Report 6173096-7 (Version None)
Quarter: 2009Q2

REPORT INFORMATION
  Report Type: 
  Country: None (occurrence: None)
  Receive Date: 20090428
  Receipt Date: 20090414
  Transmission Date: 20091009
  Serious: Yes (Hospitalization)
  Sender: FDA-Public Use
  Company Number: 2009001144

PATIENT
  Age: 59 Year
  Sex: Female
  Weight: 50 kg

DRUGS (10)
  1. ERLOTINIB (ERLOTINIB) (TABLET) (ERLOTINNIB) [Suspect]
     Indication: NON-SMALL CELL LUNG CANCER
     Dosage: (150 MG, QD), ORAL
     Route: 048
     Dates: start: 20081208, end: 20090216
  2. SUNITINIB/ PLACEBO [Suspect]
     Indication: NON-SMALL CELL LUNG CANCER
     Dosage: (37.5 MG, QD), ORAL
     Route: 048
     Dates: start: 20081208, end: 20090216
  3. MORPHINE SULFATE [Concomitant]
  4. CITALOPRAM HYDROBROMIDE [Concomitant]
  5. ORAMORPH SR [Concomitant]
  6. DICLOFENAC SODIUM [Concomitant]
  7. QVAR [Concomitant]
  8. SALBUTAMOL (SALBUTAMOL) [Concomitant]
  9. RANITIDINE [Concomitant]
  10. METOCLOPRAMIDE [Concomitant]

REACTIONS (5)
  - CARDIAC DISORDER [None]
  - CONDITION AGGRAVATED [None]
  - MALIGNANT NEOPLASM PROGRESSION [None]
  - NON-SMALL CELL LUNG CANCER METASTATIC [None]
  - PERICARDIAL EFFUSION [None]
